FAERS Safety Report 7970102-1 (Version None)
Quarter: 2011Q4

REPORT INFORMATION
  Report Type: 
  Country: None (occurrence: None)
  Receive Date: 20111212
  Receipt Date: 20111207
  Transmission Date: 20120403
  Serious: Yes (Hospitalization, Disabling, Other)
  Sender: FDA-Public Use
  Company Number: US-TEVA-312829USA

PATIENT
  Sex: Female

DRUGS (2)
  1. ALENDRONATE SODIUM [Suspect]
     Indication: OSTEOPOROSIS
     Dates: start: 20011001, end: 20100101
  2. ALENDRONIC ACID [Suspect]
     Indication: OSTEOPOROSIS

REACTIONS (5)
  - LOW TURNOVER OSTEOPATHY [None]
  - FRACTURE NONUNION [None]
  - TOXICITY TO VARIOUS AGENTS [None]
  - FEMUR FRACTURE [None]
  - BONE DISORDER [None]
